FAERS Safety Report 9106139 (Version 1)
Quarter: 2013Q1

REPORT INFORMATION
  Report Type: Spontaneous
  Country: US (occurrence: US)
  Receive Date: 20130221
  Receipt Date: 20130221
  Transmission Date: 20140127
  Serious: No
  Sender: FDA-Public Use
  Company Number: US-B.I. PHARMACEUTICALS,INC./RIDGEFIELD-2013-BI-04373BP

PATIENT
  Age: 54 Year
  Sex: Female
  Weight: 44 kg

DRUGS (6)
  1. COMBIVENT [Suspect]
     Indication: CHRONIC OBSTRUCTIVE PULMONARY DISEASE
     Route: 055
     Dates: start: 20130206
  2. SPIRIVA [Suspect]
     Indication: BRONCHITIS CHRONIC
     Dosage: 18 MCG
     Route: 055
     Dates: start: 2007
  3. METOPROLOL [Concomitant]
     Indication: HYPERTENSION
     Dosage: 300 MG
     Route: 048
  4. ALBUTEROL [Concomitant]
     Route: 055
  5. LISINOPRIL [Concomitant]
     Indication: CARDIOMEGALY
     Dosage: 20 MG
     Route: 048
  6. ADVAIR [Concomitant]
     Route: 055

REACTIONS (2)
  - Lower respiratory tract infection [Not Recovered/Not Resolved]
  - Dyspnoea [Not Recovered/Not Resolved]
